FAERS Safety Report 23832086 (Version 1)
Quarter: 2024Q2

REPORT INFORMATION
  Report Type: Spontaneous
  Country: US (occurrence: None)
  Receive Date: 20240507
  Receipt Date: 20240507
  Transmission Date: 20240716
  Serious: Yes (Hospitalization)
  Sender: FDA-Public Use
  Company Number: None

PATIENT
  Age: 83 Year
  Sex: Male
  Weight: 94 kg

DRUGS (1)
  1. METOPROLOL TARTRATE [Suspect]
     Active Substance: METOPROLOL TARTRATE
     Indication: Atrial fibrillation
     Dates: start: 20220725, end: 20220807

REACTIONS (10)
  - Syncope [None]
  - Hyperhidrosis [None]
  - Loss of consciousness [None]
  - Fall [None]
  - Head injury [None]
  - Dyskinesia [None]
  - Dizziness postural [None]
  - Atelectasis [None]
  - Cardiomegaly [None]
  - Orthostatic hypotension [None]

NARRATIVE: CASE EVENT DATE: 20220807
